FAERS Safety Report 10956930 (Version 1)
Quarter: 2015Q1

REPORT INFORMATION
  Report Type: Other
  Country: DE (occurrence: DE)
  Receive Date: 20150326
  Receipt Date: 20150326
  Transmission Date: 20150721
  Serious: Yes (Other)
  Sender: FDA-Public Use
  Company Number: DE-APOTEX-2015AP007704

PATIENT
  Age: 1 Day
  Sex: Male
  Weight: 2.2 kg

DRUGS (3)
  1. SALBUTAMOL [Concomitant]
     Active Substance: ALBUTEROL
     Indication: ASTHMA
     Dosage: UNK, PRN
     Route: 064
  2. FOLIO [Concomitant]
     Active Substance: FOLIC ACID
     Indication: PRODUCT USED FOR UNKNOWN INDICATION
     Route: 064
  3. PAXIL [Suspect]
     Active Substance: PAROXETINE HYDROCHLORIDE
     Indication: DEPRESSION
     Dosage: 40 MG, QD
     Route: 064

REACTIONS (4)
  - Intraventricular haemorrhage neonatal [Recovering/Resolving]
  - Premature baby [Unknown]
  - Foetal exposure during pregnancy [Unknown]
  - Hyperventilation [Recovered/Resolved]

NARRATIVE: CASE EVENT DATE: 20130715
